FAERS Safety Report 10263952 (Version 2)
Quarter: 2014Q2

REPORT INFORMATION
  Report Type: Report from Study
  Country: JP (occurrence: JP)
  Receive Date: 20140627
  Receipt Date: 20140627
  Transmission Date: 20141212
  Serious: Yes (Death, Other)
  Sender: FDA-Public Use
  Company Number: JP-009507513-1307JPN012171

PATIENT
  Age: 66 Year
  Sex: Female
  Weight: 35 kg

DRUGS (8)
  1. TEMODAL [Suspect]
     Indication: ANAPLASTIC ASTROCYTOMA
     Dosage: 75 MG/SQM (TOTAL DAILY DOSE)
     Route: 048
     Dates: start: 20120524, end: 20120625
  2. TEMODAL [Suspect]
     Dosage: 75 MG/SQM (TOTAL DAILY DOSE)
     Route: 048
     Dates: start: 20120709, end: 20120719
  3. TEMODAL [Suspect]
     Dosage: 150 MG/SQM (TOTAL DAILY DOSE)
     Route: 048
     Dates: start: 20121001, end: 20121005
  4. TEMODAL [Suspect]
     Dosage: 150 MG/SQM (TOTAL DAILY DOSE)
     Route: 048
     Dates: start: 20121105, end: 20121109
  5. TEMODAL [Suspect]
     Dosage: 100 MG/SQM (TOTAL DAILY DOSE)
     Route: 048
     Dates: start: 20121227, end: 20121231
  6. BAKTAR [Concomitant]
     Indication: ANTIFUNGAL PROPHYLAXIS
     Dosage: DAILY DOSE UNKNOWN (FORMULATION POR)
     Route: 048
     Dates: start: 20120602, end: 20120715
  7. NASEA [Concomitant]
     Indication: PROPHYLAXIS
     Dosage: DAILY DOSE UNKNOWN (FORMULATION POR)
     Route: 048
     Dates: start: 20120524, end: 20121203
  8. MAGMITT [Concomitant]
     Indication: PROPHYLAXIS
     Dosage: DAILY DOSE UNKNOWN (FORMULATION POR)
     Route: 048
     Dates: start: 20120527

REACTIONS (6)
  - Disease progression [Fatal]
  - Hepatic function abnormal [Recovering/Resolving]
  - Pyrexia [Recovering/Resolving]
  - Decreased appetite [Recovering/Resolving]
  - Pyrexia [Recovering/Resolving]
  - Hepatic function abnormal [Recovering/Resolving]
